FAERS Safety Report 9975900 (Version 1)
Quarter: 2014Q1

REPORT INFORMATION
  Report Type: Spontaneous
  Country: US (occurrence: US)
  Receive Date: 20140306
  Receipt Date: 20140306
  Transmission Date: 20141002
  Serious: No
  Sender: FDA-Public Use
  Company Number: US-PFIZER INC-2014060292

PATIENT
  Age: 57 Year
  Sex: Male
  Weight: 49.43 kg

DRUGS (1)
  1. VIAGRA [Suspect]
     Indication: ERECTILE DYSFUNCTION
     Dosage: 100 MG, AS NEEDED
     Route: 048

REACTIONS (3)
  - Poor quality drug administered [Unknown]
  - Product taste abnormal [Unknown]
  - Drug ineffective [Unknown]
